FAERS Safety Report 11219581 (Version 1)
Quarter: 2015Q2

REPORT INFORMATION
  Report Type: Spontaneous
  Country: US (occurrence: None)
  Receive Date: 20150624
  Receipt Date: 20150624
  Transmission Date: 20150821
  Serious: Yes (Other)
  Sender: FDA-Public Use
  Company Number: None

PATIENT

DRUGS (1)
  1. VITAMIN D2 [Suspect]
     Active Substance: ERGOCALCIFEROL
     Indication: ORAL DISORDER
     Dosage: 50,000 UNITS?2 PARTIAL OF 8?6 PARTIAL OF 8?GEL CAPS?2 TIMES A WEEK ?SWALLOWED BY MOUH
     Route: 048
     Dates: start: 20150529, end: 20150605

REACTIONS (9)
  - Insomnia [None]
  - Hypoaesthesia [None]
  - Flatulence [None]
  - Vision blurred [None]
  - Vitamin D deficiency [None]
  - Ill-defined disorder [None]
  - Paraesthesia [None]
  - Medication residue present [None]
  - Peripheral vascular disorder [None]
